FAERS Safety Report 7739888-5 (Version None)
Quarter: 2011Q3

REPORT INFORMATION
  Report Type: 
  Country: None (occurrence: None)
  Receive Date: 20110909
  Receipt Date: 20110831
  Transmission Date: 20111222
  Serious: Yes (Other)
  Sender: FDA-Public Use
  Company Number: PHHY2011BR79120

PATIENT
  Age: 67 Year
  Sex: Male

DRUGS (4)
  1. IMATINIB MESYLATE [Suspect]
     Indication: CHRONIC MYELOID LEUKAEMIA
  2. HYDROXYUREA [Concomitant]
  3. ACE INHIBITORS [Concomitant]
  4. INTERFERON ALFA [Concomitant]

REACTIONS (1)
  - RENAL FAILURE CHRONIC [None]
